FAERS Safety Report 7443707-4 (Version None)
Quarter: 2011Q2

REPORT INFORMATION
  Report Type: 
  Country: None (occurrence: None)
  Receive Date: 20110428
  Receipt Date: 20110415
  Transmission Date: 20111010
  Serious: Yes (Hospitalization, Other)
  Sender: FDA-Public Use
  Company Number: US-ELI_LILLY_AND_COMPANY-US201103008744

PATIENT
  Sex: Male

DRUGS (9)
  1. ANTIHYPERTENSIVES [Concomitant]
  2. DIURETICS [Concomitant]
  3. LANTUS [Concomitant]
     Dosage: UNK, EACH EVENING
  4. LIPID MODIFYING AGENTS [Concomitant]
  5. GEMZAR [Suspect]
     Indication: LUNG NEOPLASM MALIGNANT
     Dosage: UNK
     Dates: start: 20100714
  6. LYRICA [Concomitant]
  7. GLIPIZIDE [Concomitant]
     Indication: DIABETES MELLITUS
  8. POTASSIUM [Concomitant]
  9. HYDROCODONE [Concomitant]
     Indication: PAIN

REACTIONS (8)
  - BACK PAIN [None]
  - INSOMNIA [None]
  - NECK PAIN [None]
  - FATIGUE [None]
  - PAIN IN EXTREMITY [None]
  - RENAL FAILURE [None]
  - TREMOR [None]
  - ADVERSE REACTION [None]
